FAERS Safety Report 8892562 (Version 1)
Quarter: 2012Q4

REPORT INFORMATION
  Report Type: Spontaneous
  Country: US (occurrence: None)
  Receive Date: 20121105
  Receipt Date: 20121105
  Transmission Date: 20130627
  Serious: Yes (Other)
  Sender: FDA-Public Use
  Company Number: None

PATIENT
  Age: 34 Year
  Sex: Male

DRUGS (1)
  1. CIPRO [Suspect]
     Route: 048
     Dates: start: 20120601, end: 20120610

REACTIONS (8)
  - Hypoaesthesia [None]
  - Hypoaesthesia [None]
  - Paraesthesia [None]
  - Feeling cold [None]
  - Dysstasia [None]
  - Arthralgia [None]
  - Gait disturbance [None]
  - Sensory disturbance [None]
